FAERS Safety Report 10146007 (Version 1)
Quarter: 2014Q2

REPORT INFORMATION
  Report Type: Spontaneous
  Country: TR (occurrence: TR)
  Receive Date: 20140501
  Receipt Date: 20140501
  Transmission Date: 20141212
  Serious: Yes (Other)
  Sender: FDA-Public Use
  Company Number: PHHY2014TR052883

PATIENT
  Age: 33 Year
  Sex: Male

DRUGS (1)
  1. CICLOSPORIN [Suspect]
     Indication: ACUTE GRAFT VERSUS HOST DISEASE

REACTIONS (1)
  - Guillain-Barre syndrome [Recovering/Resolving]
